FAERS Safety Report 23933629 (Version 4)
Quarter: 2024Q3

REPORT INFORMATION
  Report Type: Spontaneous
  Country: US (occurrence: US)
  Receive Date: 20240603
  Receipt Date: 20240826
  Transmission Date: 20241016
  Serious: Yes (Other)
  Sender: BAYER
  Company Number: US-BAYER-2024A080145

PATIENT
  Age: 13 Year
  Sex: Male
  Weight: 125 kg

DRUGS (16)
  1. KOVALTRY [Suspect]
     Active Substance: ANTIHEMOPHILIC FACTOR, HUMAN RECOMBINANT
     Indication: Factor VIII deficiency
     Dosage: 1000 IU, BIW
     Route: 042
     Dates: start: 202211
  2. KOVALTRY [Suspect]
     Active Substance: ANTIHEMOPHILIC FACTOR, HUMAN RECOMBINANT
     Indication: Factor VIII deficiency
     Dosage: 250 IU, BIW
     Route: 042
     Dates: start: 202211
  3. KOVALTRY [Suspect]
     Active Substance: ANTIHEMOPHILIC FACTOR, HUMAN RECOMBINANT
     Indication: Factor VIII deficiency
     Dosage: 3000 IU, BIW
     Route: 042
     Dates: start: 202211
  4. KOVALTRY [Suspect]
     Active Substance: ANTIHEMOPHILIC FACTOR, HUMAN RECOMBINANT
     Indication: Factor VIII deficiency
     Dosage: TWICE A WEEK, ON MONDAY AND WEDNESDAY, AND AS NEEDED
     Dates: start: 202211
  5. KOVALTRY [Suspect]
     Active Substance: ANTIHEMOPHILIC FACTOR, HUMAN RECOMBINANT
     Indication: Factor VIII deficiency
     Dosage: 3000 IU
     Route: 042
     Dates: start: 202211
  6. KOVALTRY [Suspect]
     Active Substance: ANTIHEMOPHILIC FACTOR, HUMAN RECOMBINANT
     Indication: Factor VIII deficiency
     Dosage: 1500 IU
     Route: 042
     Dates: start: 202211
  7. KOVALTRY [Suspect]
     Active Substance: ANTIHEMOPHILIC FACTOR, HUMAN RECOMBINANT
     Indication: Factor VIII deficiency
     Dosage: 3000 IU
     Route: 042
     Dates: start: 202211
  8. KOVALTRY [Suspect]
     Active Substance: ANTIHEMOPHILIC FACTOR, HUMAN RECOMBINANT
     Indication: Factor VIII deficiency
     Dosage: 500 IU
     Route: 042
     Dates: start: 202211
  9. KOVALTRY [Suspect]
     Active Substance: ANTIHEMOPHILIC FACTOR, HUMAN RECOMBINANT
     Indication: Factor VIII deficiency
     Dosage: 2 DF
     Route: 042
  10. KOVALTRY [Suspect]
     Active Substance: ANTIHEMOPHILIC FACTOR, HUMAN RECOMBINANT
     Indication: Factor VIII deficiency
     Dosage: 1500 IU, BIW
     Route: 042
  11. KOVALTRY [Suspect]
     Active Substance: ANTIHEMOPHILIC FACTOR, HUMAN RECOMBINANT
     Indication: Factor VIII deficiency
     Dosage: 3000 IU, OW
  12. HEPARIN [Concomitant]
     Active Substance: HEPARIN SODIUM
  13. AMINOCAPROIC ACID [Concomitant]
     Active Substance: AMINOCAPROIC ACID
  14. SALINE [Concomitant]
     Active Substance: SODIUM CHLORIDE
  15. LIDOCAINE [Concomitant]
     Active Substance: LIDOCAINE
  16. PRILOCAINE [Concomitant]
     Active Substance: PRILOCAINE

REACTIONS (6)
  - Mouth haemorrhage [None]
  - Haemorrhage [Recovered/Resolved]
  - Haemarthrosis [None]
  - Haemorrhage [None]
  - Haemorrhage [None]
  - Weight increased [None]

NARRATIVE: CASE EVENT DATE: 20240620
